FAERS Safety Report 9889215 (Version 1)
Quarter: 2014Q1

REPORT INFORMATION
  Report Type: Spontaneous
  Country: US (occurrence: US)
  Receive Date: 20140211
  Receipt Date: 20140211
  Transmission Date: 20141002
  Serious: Yes (Death)
  Sender: FDA-Public Use
  Company Number: US-ALKERMES INC.-ALK-2014-002502

PATIENT
  Sex: 0

DRUGS (1)
  1. VIVITROL [Suspect]
     Indication: DRUG DEPENDENCE
     Dosage: 380 MG, Q28D
     Route: 030

REACTIONS (1)
  - Death [Fatal]
